FAERS Safety Report 14185164 (Version 1)
Quarter: 2017Q4

REPORT INFORMATION
  Report Type: Spontaneous
  Country: US (occurrence: US)
  Receive Date: 20171111
  Receipt Date: 20171111
  Transmission Date: 20180321
  Serious: Yes (Other)
  Sender: FDA-Public Use
  Company Number: None

PATIENT
  Age: 69 Year
  Sex: Male
  Weight: 76.5 kg

DRUGS (1)
  1. GADOLINIUM CONTRAST AGENT [Suspect]
     Active Substance: GADOLINIUM
     Indication: NUCLEAR MAGNETIC RESONANCE IMAGING
     Dates: start: 20141205, end: 20170531

REACTIONS (4)
  - Syncope [None]
  - Anti-thyroid antibody positive [None]
  - Blood thyroid stimulating hormone increased [None]
  - Nausea [None]

NARRATIVE: CASE EVENT DATE: 20171108
